FAERS Safety Report 6676844-2 (Version None)
Quarter: 2010Q2

REPORT INFORMATION
  Report Type: 
  Country: None (occurrence: None)
  Receive Date: 20100408
  Receipt Date: 20100408
  Transmission Date: 20101027
  Serious: Yes (Disabling, Other)
  Sender: FDA-Public Use
  Company Number: None

PATIENT
  Age: 73 Year
  Sex: Male
  Weight: 76.8 kg

DRUGS (2)
  1. SIMVASTATIN [Suspect]
     Indication: BLOOD CHOLESTEROL INCREASED
     Dosage: 40 MG ZOCOR DAILY 047
     Dates: start: 20100205, end: 20100215
  2. ATENOLOL [Suspect]
     Indication: BLOOD CHOLESTEROL INCREASED
     Dosage: 25MG ATENOLOL DAILY 047
     Dates: start: 20100205, end: 20100215

REACTIONS (5)
  - ARTHROPATHY [None]
  - MUSCLE ATROPHY [None]
  - MUSCLE DISORDER [None]
  - PAIN [None]
  - PARAESTHESIA [None]
